FAERS Safety Report 10482148 (Version 2)
Quarter: 2014Q3

REPORT INFORMATION
  Report Type: Spontaneous
  Country: DK (occurrence: DK)
  Receive Date: 20140929
  Receipt Date: 20140929
  Transmission Date: 20150326
  Serious: Yes (Life-Threatening, Hospitalization, Other)
  Sender: FDA-Public Use
  Company Number: DK-GILEAD-2014-0115364

PATIENT
  Age: 57 Year
  Sex: Male

DRUGS (6)
  1. LAMOTRIGIN [Concomitant]
     Active Substance: LAMOTRIGINE
  2. SYMBICORT [Concomitant]
     Active Substance: BUDESONIDE\FORMOTEROL FUMARATE DIHYDRATE
  3. LITAREX                            /00033708/ [Concomitant]
  4. BRICANYL [Concomitant]
     Active Substance: TERBUTALINE SULFATE
  5. MODIODAL [Concomitant]
     Active Substance: MODAFINIL
  6. STRIBILD [Suspect]
     Active Substance: COBICISTAT\ELVITEGRAVIR\EMTRICITABINE\TENOFOVIR DISOPROXIL FUMARATE
     Indication: HIV INFECTION
     Dosage: 1 DF, QD
     Route: 048
     Dates: start: 20140411, end: 20140915

REACTIONS (2)
  - Suicide attempt [Recovered/Resolved]
  - Depression [Recovering/Resolving]

NARRATIVE: CASE EVENT DATE: 201409
